FAERS Safety Report 6517144-0 (Version None)
Quarter: 2009Q4

REPORT INFORMATION
  Report Type: 
  Country: None (occurrence: None)
  Receive Date: 20091223
  Receipt Date: 20091215
  Transmission Date: 20100525
  Serious: Yes (Hospitalization)
  Sender: FDA-Public Use
  Company Number: IE-ELI_LILLY_AND_COMPANY-IE200908002740

PATIENT
  Sex: Male

DRUGS (1)
  1. STRATTERA [Suspect]
     Indication: ATTENTION DEFICIT/HYPERACTIVITY DISORDER
     Dosage: 90 MG, UNKNOWN
     Route: 048
     Dates: start: 20090101

REACTIONS (2)
  - ELECTROCARDIOGRAM QT PROLONGED [None]
  - PSYCHIATRIC INVESTIGATION [None]
